FAERS Safety Report 15202683 (Version 1)
Quarter: 2018Q3

REPORT INFORMATION
  Report Type: Spontaneous
  Country: FR (occurrence: FR)
  Receive Date: 20180726
  Receipt Date: 20180726
  Transmission Date: 20181010
  Serious: Yes (Other)
  Sender: FDA-Public Use
  Company Number: FR-AUROBINDO-AUR-APL-2018-037549

PATIENT
  Age: 41 Year
  Sex: Male

DRUGS (1)
  1. IBUPROFEN. [Suspect]
     Active Substance: IBUPROFEN
     Indication: PRODUCT USED FOR UNKNOWN INDICATION
     Dosage: 400 MILLIGRAM IN TOTAL
     Route: 048
     Dates: start: 20170616, end: 20170616

REACTIONS (5)
  - Dyspnoea [Recovered/Resolved]
  - Face oedema [Recovered/Resolved]
  - Nasal obstruction [Recovered/Resolved]
  - Laryngeal dyspnoea [Recovered/Resolved]
  - Dysphagia [Recovered/Resolved]

NARRATIVE: CASE EVENT DATE: 20170616
